FAERS Safety Report 6953318-2 (Version None)
Quarter: 2010Q3

REPORT INFORMATION
  Report Type: 
  Country: None (occurrence: None)
  Receive Date: 20100829
  Receipt Date: 20100607
  Transmission Date: 20110219
  Serious: No
  Sender: FDA-Public Use
  Company Number: US-ABBOTT-10P-163-0650227-00

PATIENT
  Sex: Female
  Weight: 59.928 kg

DRUGS (6)
  1. NIASPAN [Suspect]
     Indication: BLOOD CHOLESTEROL INCREASED
     Dosage: EVERY NIGHT
     Dates: start: 20100402, end: 20100501
  2. NIASPAN [Suspect]
     Dates: start: 20100502
  3. ORTHO TRI-CYCLEN [Concomitant]
     Indication: CONTRACEPTION
  4. ZYRTEC-D 12 HOUR [Concomitant]
     Indication: HYPERSENSITIVITY
  5. ASPIRIN [Concomitant]
     Indication: PRODUCT USED FOR UNKNOWN INDICATION
     Dosage: 1/2 HR BEFORE TAKING NIASPAN
  6. BENADRYL [Concomitant]
     Indication: HYPERSENSITIVITY

REACTIONS (4)
  - ERUCTATION [None]
  - FLATULENCE [None]
  - NAUSEA [None]
  - VOMITING [None]
